FAERS Safety Report 18726818 (Version 2)
Quarter: 2021Q1

REPORT INFORMATION
  Report Type: Report from Study
  Country: US (occurrence: US)
  Receive Date: 20210111
  Receipt Date: 20210118
  Transmission Date: 20210419
  Serious: Yes (Hospitalization)
  Sender: FDA-Public Use
  Company Number: US-BAUSCH-BL-2020-029126

PATIENT
  Age: 67 Year
  Sex: Male

DRUGS (21)
  1. ZINC SULFATE. [Concomitant]
     Active Substance: ZINC SULFATE
     Indication: HEPATIC CIRRHOSIS
     Route: 048
  2. ENULOSE [Concomitant]
     Active Substance: LACTULOSE
     Indication: HEPATIC CIRRHOSIS
     Dosage: 10G/15 ML ?TAKE 15?30 ML/DAY OR BID FOR TARGET BM2?3 X/DAY
     Route: 048
  3. ENULOSE [Concomitant]
     Active Substance: LACTULOSE
     Indication: COMPLICATIONS OF TRANSPLANTED LIVER
  4. ALDACTONE [Concomitant]
     Active Substance: SPIRONOLACTONE
     Indication: HEPATIC CIRRHOSIS
     Dosage: WITH BREAKFAST
     Route: 048
  5. PROTONIX [Concomitant]
     Active Substance: PANTOPRAZOLE SODIUM
     Indication: OESOPHAGITIS
  6. LASIX [Concomitant]
     Active Substance: FUROSEMIDE
     Indication: LIVER TRANSPLANT
  7. LASIX [Concomitant]
     Active Substance: FUROSEMIDE
     Indication: COMPLICATIONS OF TRANSPLANTED LIVER
  8. ENULOSE [Concomitant]
     Active Substance: LACTULOSE
     Indication: LIVER TRANSPLANT
  9. PROTONIX [Concomitant]
     Active Substance: PANTOPRAZOLE SODIUM
     Indication: GASTROOESOPHAGEAL REFLUX DISEASE
     Dosage: MAY INCREASE TO BID IF SYMPTOMATIC
     Route: 048
  10. PROGRAF [Concomitant]
     Active Substance: TACROLIMUS
     Indication: LIVER TRANSPLANT
     Route: 048
  11. XIFAXAN [Suspect]
     Active Substance: RIFAXIMIN
     Indication: HEPATIC ENCEPHALOPATHY
     Dosage: IMPAIRED BRIAN FUNCTION DUE TO LIVER DISEASE
     Route: 048
     Dates: start: 20200721, end: 2020
  12. ZINC SULFATE. [Concomitant]
     Active Substance: ZINC SULFATE
     Indication: COMPLICATIONS OF TRANSPLANTED LIVER
  13. LASIX [Concomitant]
     Active Substance: FUROSEMIDE
     Indication: HEPATIC CIRRHOSIS
     Dosage: TAKE ONE HALF TABLET EVERY MORNING
     Route: 048
  14. ENULOSE [Concomitant]
     Active Substance: LACTULOSE
     Indication: HEPATIC ENCEPHALOPATHY
  15. ALDACTONE [Concomitant]
     Active Substance: SPIRONOLACTONE
     Indication: COMPLICATIONS OF TRANSPLANTED LIVER
  16. PROGRAF [Concomitant]
     Active Substance: TACROLIMUS
     Indication: COMPLICATIONS OF TRANSPLANTED LIVER
  17. ALDACTONE [Concomitant]
     Active Substance: SPIRONOLACTONE
     Indication: LIVER TRANSPLANT
  18. CARAFATE [Concomitant]
     Active Substance: SUCRALFATE
     Indication: LIVER TRANSPLANT
  19. SHINGRIX [Concomitant]
     Active Substance: RECOMBINANT VARICELLA ZOSTER VIRUS (VZV) GLYCOPROTEIN E
     Indication: PRODUCT USED FOR UNKNOWN INDICATION
     Dates: start: 20030829
  20. ZINC SULFATE. [Concomitant]
     Active Substance: ZINC SULFATE
     Indication: LIVER TRANSPLANT
  21. CARAFATE [Concomitant]
     Active Substance: SUCRALFATE
     Indication: VARICES OESOPHAGEAL
     Dosage: TO BE TAKEN ITSELF WITH NO OTHER MEDICATIONS
     Route: 048

REACTIONS (2)
  - Infection [Unknown]
  - Therapy interrupted [Unknown]
